FAERS Safety Report 9835616 (Version 2)
Quarter: 2014Q1

REPORT INFORMATION
  Report Type: Report from Study
  Country: MX (occurrence: MX)
  Receive Date: 20140122
  Receipt Date: 20140203
  Transmission Date: 20141002
  Serious: Yes (Other)
  Sender: FDA-Public Use
  Company Number: PHHY2014MX007068

PATIENT
  Age: 79 Year
  Sex: Female

DRUGS (2)
  1. CO-DIOVAN [Suspect]
     Indication: HYPERTENSION
     Dosage: 1 DF (160/12.5MG) DAILY
     Route: 048
     Dates: start: 201011
  2. CO-DIOVAN [Suspect]
     Dosage: 2 DF (160/12.5MG) DAILY
     Route: 048

REACTIONS (2)
  - Bladder prolapse [Not Recovered/Not Resolved]
  - Blood pressure increased [Not Recovered/Not Resolved]
